FAERS Safety Report 21195323 (Version 3)
Quarter: 2022Q3

REPORT INFORMATION
  Report Type: Spontaneous
  Country: US (occurrence: US)
  Receive Date: 20220810
  Receipt Date: 20220922
  Transmission Date: 20221026
  Serious: Yes (Death)
  Sender: FDA-Public Use
  Company Number: US-ELI_LILLY_AND_COMPANY-US202208004246

PATIENT
  Age: 43 Year
  Sex: Male
  Weight: 90.249 kg

DRUGS (31)
  1. ALIMTA [Suspect]
     Active Substance: PEMETREXED DISODIUM
     Indication: Product used for unknown indication
     Dosage: 1031 MG, UNKNOWN
     Route: 065
     Dates: start: 20220406
  2. ALIMTA [Suspect]
     Active Substance: PEMETREXED DISODIUM
     Dosage: 1031 UNK
     Route: 065
     Dates: start: 20220427
  3. ALIMTA [Suspect]
     Active Substance: PEMETREXED DISODIUM
     Dosage: 1031 UNK
     Route: 065
     Dates: start: 20220518
  4. CARBOPLATIN [Concomitant]
     Active Substance: CARBOPLATIN
     Indication: Product used for unknown indication
     Dosage: 725, UNKNOWN
     Route: 065
     Dates: start: 20220406
  5. CARBOPLATIN [Concomitant]
     Active Substance: CARBOPLATIN
     Dosage: 725, UNKNOWN
     Route: 065
     Dates: start: 20220427
  6. CARBOPLATIN [Concomitant]
     Active Substance: CARBOPLATIN
     Dosage: 725, UNKNOWN
     Route: 065
     Dates: start: 20220518
  7. KEYTRUDA [Concomitant]
     Active Substance: PEMBROLIZUMAB
     Indication: Product used for unknown indication
     Dosage: 200, UNKNOWN
     Route: 065
     Dates: start: 20220406
  8. KEYTRUDA [Concomitant]
     Active Substance: PEMBROLIZUMAB
     Dosage: 200, UNKNOWN
     Route: 065
     Dates: start: 20220427
  9. KEYTRUDA [Concomitant]
     Active Substance: PEMBROLIZUMAB
     Dosage: 200, UNKNOWN
     Route: 065
     Dates: start: 20220518
  10. PALONOSETRON [Concomitant]
     Active Substance: PALONOSETRON
     Indication: Product used for unknown indication
     Dosage: 250, UNKNOWN
     Route: 065
     Dates: start: 20220406
  11. PALONOSETRON [Concomitant]
     Active Substance: PALONOSETRON
     Dosage: 250, UNKNOWN
     Route: 065
     Dates: start: 20220427
  12. PALONOSETRON [Concomitant]
     Active Substance: PALONOSETRON
     Dosage: 250, UNKNOWN
     Route: 065
     Dates: start: 20220518
  13. BENADRYL [Concomitant]
     Active Substance: DIPHENHYDRAMINE HYDROCHLORIDE
     Indication: Product used for unknown indication
     Dosage: 50 UNKNOWN
     Route: 065
     Dates: start: 20220406
  14. BENADRYL [Concomitant]
     Active Substance: DIPHENHYDRAMINE HYDROCHLORIDE
     Dosage: 50, UNKNOWN
     Route: 065
     Dates: start: 20220427
  15. BENADRYL [Concomitant]
     Active Substance: DIPHENHYDRAMINE HYDROCHLORIDE
     Dosage: 50, UNKNOWN
     Route: 065
     Dates: start: 20220518
  16. DECADRON [Concomitant]
     Active Substance: DEXAMETHASONE
     Indication: Product used for unknown indication
     Dosage: 20, UNKNOWN
     Route: 065
     Dates: start: 20220406
  17. DECADRON [Concomitant]
     Active Substance: DEXAMETHASONE
     Dosage: 20, UNKNOWN
     Route: 065
     Dates: start: 20220427
  18. DECADRON [Concomitant]
     Active Substance: DEXAMETHASONE
     Dosage: 20, UNKNOWN
     Route: 065
     Dates: start: 20220518
  19. EMEND (FOSAPREPITANT DIMEGLUMINE) [Concomitant]
     Active Substance: FOSAPREPITANT DIMEGLUMINE
     Indication: Product used for unknown indication
     Dosage: 150, UNKNOWN
     Route: 065
     Dates: start: 20220406
  20. EMEND (FOSAPREPITANT DIMEGLUMINE) [Concomitant]
     Active Substance: FOSAPREPITANT DIMEGLUMINE
     Dosage: 150, UNKNOWN
     Route: 065
     Dates: start: 20220427
  21. EMEND (FOSAPREPITANT DIMEGLUMINE) [Concomitant]
     Active Substance: FOSAPREPITANT DIMEGLUMINE
     Dosage: 150, UNKNOWN
     Route: 065
     Dates: start: 20220518
  22. NEULASTA [Concomitant]
     Active Substance: PEGFILGRASTIM
     Indication: Product used for unknown indication
     Dosage: 6, UNKNOWN
     Route: 065
     Dates: start: 20220407
  23. NEULASTA [Concomitant]
     Active Substance: PEGFILGRASTIM
     Dosage: 6, UNKNOWN
     Route: 065
     Dates: start: 20220428
  24. NEULASTA [Concomitant]
     Active Substance: PEGFILGRASTIM
     Dosage: 6, UNKNOWN
     Route: 065
     Dates: start: 20220519
  25. PEPCID [Concomitant]
     Active Substance: FAMOTIDINE
     Indication: Product used for unknown indication
     Dosage: 20, UNKNOWN
     Route: 065
     Dates: start: 20220406
  26. PEPCID [Concomitant]
     Active Substance: FAMOTIDINE
     Dosage: 20, UNKNOWN
     Route: 065
     Dates: start: 20220427
  27. PEPCID [Concomitant]
     Active Substance: FAMOTIDINE
     Dosage: 20, UNKNOWN
     Route: 065
     Dates: start: 20220518
  28. VITAMIN B12 [Concomitant]
     Active Substance: CYANOCOBALAMIN
     Indication: Product used for unknown indication
     Dosage: 1000, UNKNOWN
     Route: 065
     Dates: start: 20220406
  29. VITAMIN B12 [Concomitant]
     Active Substance: CYANOCOBALAMIN
     Dosage: 1000, UNKNOWN
     Route: 065
     Dates: start: 20220427
  30. VITAMIN B12 [Concomitant]
     Active Substance: CYANOCOBALAMIN
     Dosage: 1000, UNKNOWN
     Route: 065
     Dates: start: 20220518
  31. SODIUM CHLORIDE [Concomitant]
     Active Substance: SODIUM CHLORIDE
     Indication: Product used for unknown indication
     Dosage: UNK, UNKNOWN
     Route: 065
     Dates: start: 20220407

REACTIONS (1)
  - Lung adenocarcinoma [Fatal]

NARRATIVE: CASE EVENT DATE: 20220531
